FAERS Safety Report 14240528 (Version 2)
Quarter: 2018Q4

REPORT INFORMATION
  Report Type: Spontaneous
  Country: US (occurrence: US)
  Receive Date: 20171130
  Receipt Date: 20181211
  Transmission Date: 20190204
  Serious: No
  Sender: FDA-Public Use
  Company Number: US-NOVOPROD-530520

PATIENT
  Sex: Male

DRUGS (1)
  1. NOVOEIGHT [Suspect]
     Active Substance: ANTIHEMOPHILIC FACTOR, HUMAN RECOMBINANT
     Indication: PRODUCT USED FOR UNKNOWN INDICATION
     Route: 058

REACTIONS (2)
  - Injection site rash [Recovered/Resolved]
  - Rash [Recovered/Resolved]
